FAERS Safety Report 4342765-3 (Version None)
Quarter: 2004Q2

REPORT INFORMATION
  Report Type: 
  Country: None (occurrence: None)
  Receive Date: 20040409
  Receipt Date: 20030716
  Transmission Date: 20050107
  Serious: Yes (Hospitalization)
  Sender: FDA-Public Use
  Company Number: 03P-163-0225003-00

PATIENT
  Age: 40 Year
  Sex: Male
  Weight: 96.6162 kg

DRUGS (5)
  1. DEPAKOTE [Suspect]
     Indication: BIPOLAR DISORDER
     Dates: start: 20030101, end: 20030706
  2. BUPROPION HYDROCHLORIDE [Concomitant]
  3. OLANZAPINE [Concomitant]
  4. DIOVAN [Concomitant]
  5. LEXAPRO [Concomitant]

REACTIONS (2)
  - BLOOD PRESSURE INCREASED [None]
  - THROMBOCYTOPENIA [None]
